FAERS Safety Report 25421317 (Version 1)
Quarter: 2025Q2

REPORT INFORMATION
  Report Type: Report from Study
  Country: US (occurrence: US)
  Receive Date: 20250611
  Receipt Date: 20250611
  Transmission Date: 20250716
  Serious: Yes (Hospitalization, Other)
  Sender: ALEXION PHARMACEUTICALS
  Company Number: US-AstraZeneca-CH-00887378A

PATIENT

DRUGS (1)
  1. DAPAGLIFLOZIN [Suspect]
     Active Substance: DAPAGLIFLOZIN
     Route: 065

REACTIONS (8)
  - Renal failure [Unknown]
  - Atrial fibrillation [Unknown]
  - Chronic kidney disease [Unknown]
  - Nausea [Recovering/Resolving]
  - Vomiting [Recovering/Resolving]
  - Urinary tract infection [Recovering/Resolving]
  - Fungal infection [Recovering/Resolving]
  - Oesophagitis [Recovering/Resolving]
